FAERS Safety Report 10700808 (Version 1)
Quarter: 2014Q4

REPORT INFORMATION
  Report Type: Spontaneous
  Country: US (occurrence: None)
  Receive Date: 20141224
  Receipt Date: 20141224
  Transmission Date: 20150529
  Serious: Yes (Hospitalization, Other)
  Sender: FDA-Public Use
  Company Number: PHEH2014US014797

PATIENT

DRUGS (1)
  1. CLOZARIL [Suspect]
     Active Substance: CLOZAPINE
     Dates: end: 20140710

REACTIONS (6)
  - Syncope [None]
  - Neutrophil count decreased [None]
  - Sepsis [None]
  - White blood cell count decreased [None]
  - White blood cell count increased [None]
  - Loss of consciousness [None]

NARRATIVE: CASE EVENT DATE: 20140710
